FAERS Safety Report 9850027 (Version 1)
Quarter: 2014Q1

REPORT INFORMATION
  Report Type: Spontaneous
  Country: BR (occurrence: BR)
  Receive Date: 20140128
  Receipt Date: 20140128
  Transmission Date: 20141002
  Serious: Yes (Other)
  Sender: FDA-Public Use
  Company Number: PHHY2014BR008294

PATIENT
  Age: 67 Year
  Sex: Female
  Weight: 75 kg

DRUGS (4)
  1. MYFORTIC [Suspect]
     Indication: TRANSPLANT
     Dosage: 2 DF, DAILY
     Route: 048
  2. CODATEN [Suspect]
     Indication: SPINAL PAIN
     Dosage: 2 DF, DAILY
     Route: 048
     Dates: start: 20140116, end: 20140120
  3. CODATEN [Suspect]
     Dosage: 2 DF, DAILY
     Route: 048
     Dates: start: 20140121, end: 20140121
  4. CARVEDILOL [Suspect]
     Indication: ORGAN FAILURE
     Dosage: 2 DF, DAILY
     Route: 048

REACTIONS (8)
  - Fluid retention [Recovering/Resolving]
  - Swelling face [Recovering/Resolving]
  - Eye swelling [Recovering/Resolving]
  - Swelling [Recovering/Resolving]
  - Local swelling [Recovered/Resolved]
  - Abdominal distension [Recovered/Resolved]
  - Drug hypersensitivity [Recovering/Resolving]
  - Weight decreased [Unknown]
